FAERS Safety Report 18604740 (Version 1)
Quarter: 2020Q4

REPORT INFORMATION
  Report Type: Spontaneous
  Country: US (occurrence: US)
  Receive Date: 20201211
  Receipt Date: 20201211
  Transmission Date: 20210114
  Serious: Yes (Hospitalization)
  Sender: FDA-Public Use
  Company Number: None

PATIENT
  Age: 70 Year
  Sex: Male
  Weight: 97.5 kg

DRUGS (1)
  1. BAMLANIVIMAB. [Suspect]
     Active Substance: BAMLANIVIMAB
     Indication: COVID-19
     Dosage: ?          OTHER FREQUENCY:ONCE;?
     Route: 041
     Dates: start: 20201204, end: 20201204

REACTIONS (7)
  - Fall [None]
  - Hypoxia [None]
  - Skin abrasion [None]
  - Headache [None]
  - Dizziness [None]
  - Muscular weakness [None]
  - Hyperglycaemia [None]

NARRATIVE: CASE EVENT DATE: 20201205
